FAERS Safety Report 16697775 (Version 6)
Quarter: 2020Q1

REPORT INFORMATION
  Report Type: Spontaneous
  Country: US (occurrence: US)
  Receive Date: 20190813
  Receipt Date: 20200103
  Transmission Date: 20200409
  Serious: Yes (Death, Other)
  Sender: FDA-Public Use
  Company Number: US-JNJFOC-20190726042

PATIENT
  Age: 59 Year
  Sex: Male
  Weight: 70.37 kg

DRUGS (3)
  1. ERDAFITINIB. [Suspect]
     Active Substance: ERDAFITINIB
     Route: 048
  2. ERDAFITINIB. [Suspect]
     Active Substance: ERDAFITINIB
     Indication: PRODUCT USED FOR UNKNOWN INDICATION
     Route: 048
     Dates: start: 20190525
  3. TERBINAFINE. [Concomitant]
     Active Substance: TERBINAFINE
     Indication: PRODUCT USED FOR UNKNOWN INDICATION
     Route: 065

REACTIONS (5)
  - Death [Fatal]
  - Onycholysis [Not Recovered/Not Resolved]
  - Disease progression [Unknown]
  - Oral fungal infection [Not Recovered/Not Resolved]
  - Nail toxicity [Not Recovered/Not Resolved]

NARRATIVE: CASE EVENT DATE: 201907
